FAERS Safety Report 8303634-7 (Version None)
Quarter: 2012Q2

REPORT INFORMATION
  Report Type: 
  Country: None (occurrence: None)
  Receive Date: 20120423
  Receipt Date: 20120416
  Transmission Date: 20120825
  Serious: Yes (Hospitalization, Other)
  Sender: FDA-Public Use
  Company Number: US-PFIZER INC-2012067192

PATIENT
  Sex: Female
  Weight: 62 kg

DRUGS (20)
  1. MAGNESIUM OXIDE [Concomitant]
     Dosage: 400 MG, DAILY
     Route: 048
  2. POTASSIUM [Concomitant]
     Dosage: 10 MEQ, DAILY
     Route: 048
  3. LIPITOR [Concomitant]
     Dosage: 40 MG, 1X/DAY AT BEDTIME
     Route: 048
     Dates: end: 20120306
  4. POTASSIUM CHLORIDE [Concomitant]
     Dosage: 10 MEQ, DAILY
     Route: 048
  5. SUTENT [Suspect]
     Indication: METASTATIC RENAL CELL CARCINOMA
     Dosage: 50 MG, UNK DAILY (4 WEEKS ON, 2 WEEKS OFF)
     Route: 048
     Dates: start: 20111228, end: 20120304
  6. SUTENT [Suspect]
     Dosage: 50 MG, ALTERNATE DAY
     Dates: start: 20120306
  7. ASCORBIC ACID [Concomitant]
     Dosage: 500 MG, 2X/DAY
     Route: 048
  8. ULTRAM [Concomitant]
     Dosage: 50 MG, UNK DAILY
     Route: 048
  9. COUMADIN [Suspect]
     Dosage: 6 MG, ON MONDAYS AND THURSDAYS
     Dates: start: 19830101
  10. CARAFATE [Concomitant]
     Dosage: 1 MG, 2X/DAY (BEFORE MEALS AND AT BEDTIME)
  11. TRAMADOL [Concomitant]
     Indication: PAIN
     Dosage: 50 MG, AS NEEDED EVERY FOUR HOURS
     Route: 048
     Dates: start: 20120103
  12. PROTONIX [Concomitant]
     Dosage: 40 MG,
     Route: 048
  13. PROCHLORPERAZINE MALEATE [Concomitant]
     Dosage: 10 MG, AS NEEDED
     Dates: start: 20120119
  14. THERAGRAN-M [Concomitant]
     Dosage: 1 DF, 1X/DAY
     Route: 048
  15. COUMADIN [Suspect]
     Indication: DEEP VEIN THROMBOSIS
     Dosage: 4 MG, EXCEPT MONDAYS AND THURSDAYS
  16. LOZOL [Concomitant]
     Dosage: 2.5 MG, DAILY
     Route: 048
  17. BYSTOLIC [Concomitant]
     Dosage: 5 MG, DAILY
     Route: 048
  18. ZOFRAN [Concomitant]
     Indication: NAUSEA
     Dosage: 4 MG, AS NEEDED EVERY 4-6 HOURS
     Route: 048
  19. ONDANSETRON HYDROCHLORIDE [Concomitant]
     Dosage: UNK
     Dates: start: 20120119
  20. DRISDOL [Concomitant]
     Dosage: 50000 IU, 1X/DAY OR EVERY 4 WEEKS
     Route: 048

REACTIONS (12)
  - DIARRHOEA [None]
  - DRUG INTOLERANCE [None]
  - DYSPHAGIA [None]
  - DECREASED APPETITE [None]
  - ASTHENIA [None]
  - HAEMATOMA [None]
  - DEHYDRATION [None]
  - NAUSEA [None]
  - WEIGHT DECREASED [None]
  - NEOPLASM MALIGNANT [None]
  - VOMITING [None]
  - HEPATIC NEOPLASM [None]
